FAERS Safety Report 7414583-0 (Version None)
Quarter: 2011Q2

REPORT INFORMATION
  Report Type: 
  Country: None (occurrence: None)
  Receive Date: 20110414
  Receipt Date: 20110404
  Transmission Date: 20111010
  Serious: Yes (Other)
  Sender: FDA-Public Use
  Company Number: FR-BRISTOL-MYERS SQUIBB COMPANY-15665201

PATIENT
  Age: 33 Year
  Sex: Female

DRUGS (3)
  1. APIDRA [Concomitant]
     Indication: INSULIN-REQUIRING TYPE 2 DIABETES MELLITUS
     Dates: start: 20101201, end: 20110119
  2. LEVEMIR [Concomitant]
     Indication: INSULIN-REQUIRING TYPE 2 DIABETES MELLITUS
     Dosage: 1DF= 24 UI IN MORNING,30 IN EVENING
     Dates: start: 20110101
  3. GLUCOPHAGE [Suspect]
     Indication: INSULIN-REQUIRING TYPE 2 DIABETES MELLITUS

REACTIONS (3)
  - POLYHYDRAMNIOS [None]
  - ABORTION INDUCED [None]
  - PREGNANCY [None]
